FAERS Safety Report 21997787 (Version 1)
Quarter: 2023Q1

REPORT INFORMATION
  Report Type: Spontaneous
  Country: BR (occurrence: BR)
  Receive Date: 20230216
  Receipt Date: 20230216
  Transmission Date: 20230417
  Serious: Yes (Death, Hospitalization, Other)
  Sender: FDA-Public Use
  Company Number: BR-ABBVIE-4306788

PATIENT
  Sex: Female
  Weight: 55 kg

DRUGS (2)
  1. HUMIRA [Suspect]
     Active Substance: ADALIMUMAB
     Indication: Rheumatic disorder
     Route: 058
  2. Glifage 15MG [Concomitant]
     Indication: Diabetes mellitus
     Dosage: 1 TABLET
     Route: 048

REACTIONS (5)
  - Gastrointestinal carcinoma [Fatal]
  - Pain [Recovered/Resolved]
  - Off label use [Unknown]
  - COVID-19 [Unknown]
  - Cerebrovascular accident [Unknown]

NARRATIVE: CASE EVENT DATE: 20200101
